FAERS Safety Report 8036342-0 (Version None)
Quarter: 2012Q1

REPORT INFORMATION
  Report Type: 
  Country: None (occurrence: None)
  Receive Date: 20120111
  Receipt Date: 20111130
  Transmission Date: 20120608
  Serious: No
  Sender: FDA-Public Use
  Company Number: US-GLAXOSMITHKLINE-A0956053A

PATIENT
  Sex: Male

DRUGS (3)
  1. M.V.I. [Concomitant]
  2. JALYN [Suspect]
     Indication: BENIGN PROSTATIC HYPERPLASIA
     Dosage: 1CAP PER DAY
     Route: 048
     Dates: start: 20111001
  3. ZOCOR [Concomitant]

REACTIONS (1)
  - INSOMNIA [None]
